FAERS Safety Report 9175448 (Version 1)
Quarter: 2013Q1

REPORT INFORMATION
  Report Type: Report from Study
  Country: AU (occurrence: AU)
  Receive Date: 20130320
  Receipt Date: 20130320
  Transmission Date: 20140127
  Serious: Yes (Hospitalization)
  Sender: FDA-Public Use
  Company Number: AU-JNJFOC-20101201678

PATIENT
  Age: 67 Year
  Sex: Male
  Weight: 107 kg

DRUGS (18)
  1. GOLIMUMAB [Suspect]
     Indication: RHEUMATOID ARTHRITIS
     Route: 042
     Dates: start: 20100902
  2. GOLIMUMAB [Suspect]
     Indication: RHEUMATOID ARTHRITIS
     Route: 042
     Dates: start: 20100415
  3. FEXOFENADINE HYDROCHLORIDE [Concomitant]
     Indication: PROPHYLAXIS
     Route: 048
     Dates: start: 20100415
  4. PARACETAMOL [Concomitant]
     Indication: RHEUMATOID ARTHRITIS
     Route: 048
  5. PARACETAMOL [Concomitant]
     Indication: RHEUMATOID ARTHRITIS
     Route: 048
     Dates: start: 20100415
  6. PARACETAMOL [Concomitant]
     Indication: PROPHYLAXIS
     Route: 048
  7. PARACETAMOL [Concomitant]
     Indication: PROPHYLAXIS
     Route: 048
     Dates: start: 20100415
  8. FOLIC ACID [Concomitant]
     Indication: PROPHYLAXIS
     Route: 048
     Dates: start: 20100223
  9. ALLOPURINOL [Concomitant]
     Indication: HYPERURICAEMIA
     Route: 048
  10. COLCHICINE [Concomitant]
     Indication: HYPERURICAEMIA
     Route: 048
  11. PROBENECID [Concomitant]
     Indication: HYPERURICAEMIA
     Route: 048
  12. PARACETAMOL AND CODEINE [Concomitant]
     Indication: RHEUMATOID ARTHRITIS
     Route: 048
  13. SALBUTAMOL SULPHATE [Concomitant]
     Indication: CHRONIC OBSTRUCTIVE PULMONARY DISEASE
     Route: 055
  14. PREDNISOLONE [Concomitant]
     Route: 048
     Dates: start: 20100930
  15. TRIAMCINOLONE [Concomitant]
     Indication: OTITIS EXTERNA
  16. NEOMYCIN [Concomitant]
     Indication: OTITIS EXTERNA
  17. METHOTREXATE [Concomitant]
  18. ESOMEPRAZOL [Concomitant]
     Indication: GASTROOESOPHAGEAL REFLUX DISEASE

REACTIONS (2)
  - Acute pulmonary oedema [Recovered/Resolved]
  - Sepsis syndrome [Recovered/Resolved]
